FAERS Safety Report 8133103-9 (Version None)
Quarter: 2012Q1

REPORT INFORMATION
  Report Type: 
  Country: None (occurrence: None)
  Receive Date: 20120103
  Receipt Date: 20110825
  Transmission Date: 20120608
  Serious: No
  Sender: FDA-Public Use
  Company Number: AE-2011-001145

PATIENT
  Age: 48 Year
  Sex: Female

DRUGS (6)
  1. PRISTIQ [Concomitant]
  2. ADDERALL (OBETOL) [Concomitant]
  3. INCIVEK [Suspect]
     Dosage: (2 IN 1 D),ORAL
     Route: 048
     Dates: start: 20110729
  4. PEGASYS [Concomitant]
  5. ATIVAN [Concomitant]
  6. RIBAVIRIN [Concomitant]

REACTIONS (9)
  - DIARRHOEA [None]
  - NAUSEA [None]
  - PAIN [None]
  - COUGH [None]
  - HYPERHIDROSIS [None]
  - MEDICATION ERROR [None]
  - INCORRECT DOSE ADMINISTERED [None]
  - HERPES ZOSTER [None]
  - ASTHENIA [None]
